FAERS Safety Report 19465606 (Version 2)
Quarter: 2021Q3

REPORT INFORMATION
  Report Type: Spontaneous
  Country: BR (occurrence: BR)
  Receive Date: 20210625
  Receipt Date: 20210707
  Transmission Date: 20211014
  Serious: Yes (Other)
  Sender: FDA-Public Use
  Company Number: NVSC2021BR139892

PATIENT
  Sex: Female
  Weight: 82 kg

DRUGS (9)
  1. TEGRETOL [Suspect]
     Active Substance: CARBAMAZEPINE
     Indication: HEMIPLEGIA
     Dosage: 6 ML, BID (MORE THAN 10 YEARS AGO)
     Route: 048
  2. CHLORINE [Concomitant]
     Active Substance: CHLORINE
     Indication: HYPERTENSION
     Dosage: 1 DF, QD (IN THE MORNING) (15 YEARS AGO)
     Route: 048
  3. CALCORT [Concomitant]
     Active Substance: DEFLAZACORT
     Indication: HYPOTHALAMO-PITUITARY DISORDER
     Dosage: 6 MG, BID (MONDAY TO FRIDAY)
     Route: 048
  4. PURAN [Concomitant]
     Active Substance: LEVOTHYROXINE SODIUM
     Indication: HYPOTHALAMO-PITUITARY DISORDER
     Dosage: 1 DF, QD (15 YEARS AGO)
     Route: 048
  5. COZAAR [Concomitant]
     Active Substance: LOSARTAN POTASSIUM
     Indication: PRODUCT USED FOR UNKNOWN INDICATION
     Dosage: 1 DF, QD (15 YEARS AGO)
     Route: 048
  6. METICORTEN [Concomitant]
     Active Substance: PREDNISONE
     Indication: HYPOTHALAMO-PITUITARY DISORDER
     Dosage: 1 DF, QW (15 YEARS AGO)
     Route: 048
  7. VASLIP [Concomitant]
     Indication: BLOOD CHOLESTEROL
     Dosage: 1 DF, QD (15 YEARS AGO)
     Route: 048
  8. PROPRANOLOL HYDROCHLORIDE. [Concomitant]
     Active Substance: PROPRANOLOL HYDROCHLORIDE
     Indication: HYPERTENSION
     Dosage: 40 MG, BID (IN THE MORNING AND IN AFTERNOON) (15 YEARS AGO)
     Route: 048
  9. LABIRIN [Concomitant]
     Active Substance: BETAHISTINE
     Indication: DIZZINESS
     Dosage: 1 DF, BID (IN THE MORNING AND IN THE AFTERNOON) (15 YEARS AGO)
     Route: 048

REACTIONS (7)
  - Arthralgia [Not Recovered/Not Resolved]
  - Dizziness [Not Recovered/Not Resolved]
  - Pain [Unknown]
  - Insomnia [Not Recovered/Not Resolved]
  - Osteoarthritis [Not Recovered/Not Resolved]
  - Hemiplegia [Unknown]
  - Product availability issue [Unknown]
